FAERS Safety Report 16687473 (Version 1)
Quarter: 2019Q3

REPORT INFORMATION
  Report Type: Spontaneous
  Country: US (occurrence: US)
  Receive Date: 20190624
  Receipt Date: 20190624
  Transmission Date: 20191004
  Serious: No
  Sender: FDA-Public Use
  Company Number: None

PATIENT
  Age: 22 Year
  Sex: Female
  Weight: 89.81 kg

DRUGS (4)
  1. HYDROXYZINE PAMOATE. [Concomitant]
     Active Substance: HYDROXYZINE PAMOATE
  2. DEPO-PROVERA [Suspect]
     Active Substance: MEDROXYPROGESTERONE ACETATE
     Indication: DYSMENORRHOEA
     Dosage: ?          QUANTITY:1 SHOT, ONE TIME;OTHER ROUTE:INJECTION?
     Dates: start: 20180505, end: 20180505
  3. METFORMIN [Concomitant]
     Active Substance: METFORMIN HYDROCHLORIDE
  4. FLUTICSONE [Concomitant]

REACTIONS (2)
  - Glucose tolerance impaired [None]
  - Abnormal weight gain [None]

NARRATIVE: CASE EVENT DATE: 20180505
